FAERS Safety Report 8797625 (Version 1)
Quarter: 2012Q4

REPORT INFORMATION
  Report Type: 
  Country: TW (occurrence: TW)
  Receive Date: 20120920
  Receipt Date: 20120920
  Transmission Date: 20130627
  Serious: Yes (Other)
  Sender: FDA-Public Use
  Company Number: TW-JNJFOC-20120905459

PATIENT
  Age: 66 Year
  Sex: Male

DRUGS (2)
  1. DUROGESIC [Suspect]
     Indication: TUMOUR PAIN
     Route: 062
  2. MORPHINE [Concomitant]
     Indication: PRODUCT USED FOR UNKNOWN INDICATION
     Route: 065

REACTIONS (2)
  - Coma [Unknown]
  - Hypersensitivity [Unknown]
